FAERS Safety Report 7969256-2 (Version None)
Quarter: 2011Q4

REPORT INFORMATION
  Report Type: 
  Country: None (occurrence: None)
  Receive Date: 20111209
  Receipt Date: 20111201
  Transmission Date: 20120403
  Serious: Yes (Hospitalization)
  Sender: FDA-Public Use
  Company Number: US-ASTRAZENECA-2010SE57777

PATIENT
  Age: 59 Year
  Sex: Male
  Weight: 90.7 kg

DRUGS (43)
  1. SEROQUEL [Suspect]
     Route: 048
     Dates: start: 20100423
  2. SEROQUEL [Suspect]
     Route: 048
     Dates: start: 20100423
  3. SEROQUEL [Suspect]
     Dosage: TAKING 300 MG ONE AND 400 MG ONE AT NIGHT
     Route: 048
  4. LEVOTHYROXINE SODIUM [Concomitant]
  5. LORAZEPAM [Concomitant]
     Indication: BIPOLAR DISORDER
  6. TOPAMAX [Concomitant]
  7. VIT C [Concomitant]
  8. WELLBUTRIN XL [Concomitant]
  9. GLICLAZIDE [Concomitant]
  10. SEROQUEL [Suspect]
     Indication: BIPOLAR DISORDER
     Route: 048
     Dates: start: 20100208
  11. SEROQUEL [Suspect]
     Route: 048
     Dates: start: 20100423
  12. SEROQUEL [Suspect]
     Route: 048
     Dates: start: 20100423
  13. GLIPIZIDE [Concomitant]
  14. EYE DROPS [Concomitant]
  15. SEROQUEL [Suspect]
     Route: 048
     Dates: start: 20100423
  16. SEROQUEL [Suspect]
     Route: 048
     Dates: start: 20100401
  17. LORAZEPAM [Concomitant]
  18. SIMVASTATIN [Concomitant]
  19. NEXIUM [Suspect]
     Indication: GASTROOESOPHAGEAL REFLUX DISEASE
     Route: 048
  20. SEROQUEL [Suspect]
     Route: 048
     Dates: start: 20100423
  21. SEROQUEL [Suspect]
     Dosage: TAKING 300 MG ONE AND 400 MG ONE AT NIGHT
     Route: 048
  22. SEROQUEL [Suspect]
     Route: 048
     Dates: start: 20100401
  23. SEROQUEL [Suspect]
     Route: 048
     Dates: start: 20100401
  24. CALCIUM [Concomitant]
  25. FISH OIL [Concomitant]
  26. IRON PILLS [Concomitant]
  27. LUMIGAN [Concomitant]
     Dosage: OU
  28. SEROQUEL [Suspect]
     Indication: DEPRESSION
     Route: 048
     Dates: start: 20100208
  29. SEROQUEL [Suspect]
     Indication: SLEEP DISORDER
     Route: 048
     Dates: start: 20100208
  30. SEROQUEL [Suspect]
     Dosage: TAKING 300 MG ONE AND 400 MG ONE AT NIGHT
     Route: 048
  31. SEROQUEL [Suspect]
     Dosage: TAKING 300 MG ONE AND 400 MG ONE AT NIGHT
     Route: 048
  32. SEROQUEL [Suspect]
     Route: 048
     Dates: start: 20100401
  33. LISINOPRIL [Concomitant]
  34. GLIPIZIDE [Concomitant]
     Dosage: 2, 5 MG BID
  35. SEROQUEL [Suspect]
     Route: 048
     Dates: start: 20100208
  36. SEROQUEL [Suspect]
     Route: 048
     Dates: start: 20100423
  37. IONPILL FERROUS SULFATE [Concomitant]
  38. JANUVIA [Concomitant]
  39. NEXIUM [Suspect]
     Route: 048
  40. SEROQUEL [Suspect]
     Route: 048
     Dates: start: 20100423
  41. TOPAMAX [Concomitant]
     Indication: BIPOLAR DISORDER
     Dosage: TWICE A DAY
  42. DEPAKOTE [Concomitant]
  43. ATIVAN [Concomitant]

REACTIONS (26)
  - INSOMNIA [None]
  - ERUCTATION [None]
  - HEADACHE [None]
  - BLOOD GLUCOSE INCREASED [None]
  - PAIN IN EXTREMITY [None]
  - DYSPNOEA EXERTIONAL [None]
  - CHEILITIS [None]
  - CONSTIPATION [None]
  - ANAEMIA [None]
  - BLOOD GLUCOSE FLUCTUATION [None]
  - WEIGHT INCREASED [None]
  - SOMNOLENCE [None]
  - DIABETES MELLITUS [None]
  - FAECAL INCONTINENCE [None]
  - PRURITUS [None]
  - RHINORRHOEA [None]
  - DYSPHAGIA [None]
  - POLLAKIURIA [None]
  - GAIT DISTURBANCE [None]
  - DYSPNOEA [None]
  - FATIGUE [None]
  - DIET REFUSAL [None]
  - IMPAIRED SELF-CARE [None]
  - WEIGHT FLUCTUATION [None]
  - INAPPROPRIATE AFFECT [None]
  - OFF LABEL USE [None]
